FAERS Safety Report 13238304 (Version 1)
Quarter: 2017Q1

REPORT INFORMATION
  Report Type: Spontaneous
  Country: US (occurrence: US)
  Receive Date: 20170215
  Receipt Date: 20170215
  Transmission Date: 20170428
  Serious: Yes (Death)
  Sender: FDA-Public Use
  Company Number: None

PATIENT
  Age: 86 Year
  Sex: Male

DRUGS (8)
  1. MUPIROCIN. [Concomitant]
     Active Substance: MUPIROCIN
  2. IBUPROFEN. [Concomitant]
     Active Substance: IBUPROFEN
  3. ERIVEDGE [Suspect]
     Active Substance: VISMODEGIB
     Indication: SQUAMOUS CELL CARCINOMA OF SKIN
     Route: 048
  4. AMLODIPINE BESYLATE. [Concomitant]
     Active Substance: AMLODIPINE BESYLATE
  5. CILOSTAZOL. [Concomitant]
     Active Substance: CILOSTAZOL
  6. CRESTOR [Concomitant]
     Active Substance: ROSUVASTATIN CALCIUM
  7. GABAPENTIN. [Concomitant]
     Active Substance: GABAPENTIN
  8. REPAGLINIDE. [Concomitant]
     Active Substance: REPAGLINIDE

REACTIONS (1)
  - Death [None]

NARRATIVE: CASE EVENT DATE: 20170120
